FAERS Safety Report 17568897 (Version 1)
Quarter: 2020Q1

REPORT INFORMATION
  Report Type: Spontaneous
  Country: CA (occurrence: CA)
  Receive Date: 20200321
  Receipt Date: 20200321
  Transmission Date: 20200409
  Serious: Yes (Death, Hospitalization, Other)
  Sender: FDA-Public Use
  Company Number: NVSC2020CA078068

PATIENT
  Age: 76 Year
  Sex: Male

DRUGS (7)
  1. SANDOSTATIN LAR DEPOT [Suspect]
     Active Substance: OCTREOTIDE ACETATE
     Indication: CARCINOID TUMOUR
     Dosage: 40 MG, QMO
     Route: 030
  2. VALSARTAN. [Suspect]
     Active Substance: VALSARTAN
     Indication: PRODUCT USED FOR UNKNOWN INDICATION
     Route: 065
  3. BISOPROLOL [Concomitant]
     Active Substance: BISOPROLOL
     Indication: PRODUCT USED FOR UNKNOWN INDICATION
     Dosage: 5 MG, QD
     Route: 065
  4. LORAZEPAM. [Concomitant]
     Active Substance: LORAZEPAM
     Indication: PRODUCT USED FOR UNKNOWN INDICATION
     Dosage: 1 MG
     Route: 065
  5. SANDOSTATIN LAR DEPOT [Suspect]
     Active Substance: OCTREOTIDE ACETATE
     Dosage: UNK
     Route: 030
  6. XARELTO [Concomitant]
     Active Substance: RIVAROXABAN
     Indication: PRODUCT USED FOR UNKNOWN INDICATION
     Dosage: 20 MG, QD
     Route: 065
  7. SANDOSTATIN LAR DEPOT [Suspect]
     Active Substance: OCTREOTIDE ACETATE
     Indication: GASTRIC CANCER
     Dosage: 60 MG, QMO
     Route: 030

REACTIONS (29)
  - Blood pressure increased [Fatal]
  - Dyspnoea [Fatal]
  - Nasopharyngitis [Fatal]
  - Dyspepsia [Fatal]
  - Injection site pain [Fatal]
  - Anxiety [Fatal]
  - Arrhythmia [Fatal]
  - Hypoaesthesia [Fatal]
  - Negative thoughts [Fatal]
  - Respiratory rate increased [Fatal]
  - Drug ineffective [Fatal]
  - Muscle spasms [Fatal]
  - Depression [Fatal]
  - Diarrhoea [Fatal]
  - Headache [Fatal]
  - Malaise [Fatal]
  - Musculoskeletal stiffness [Fatal]
  - Neuralgia [Fatal]
  - Peritonitis [Fatal]
  - Body temperature decreased [Fatal]
  - Intestinal obstruction [Fatal]
  - Needle issue [Fatal]
  - Skin disorder [Fatal]
  - Death [Fatal]
  - Decreased appetite [Fatal]
  - Fatigue [Fatal]
  - Throat irritation [Fatal]
  - Injection site discomfort [Fatal]
  - Malignant neoplasm progression [Fatal]
